FAERS Safety Report 5939162-3 (Version None)
Quarter: 2008Q4

REPORT INFORMATION
  Report Type: 
  Country: None (occurrence: None)
  Receive Date: 20081103
  Receipt Date: 20081024
  Transmission Date: 20090506
  Serious: Yes (Hospitalization, Other)
  Sender: FDA-Public Use
  Company Number: JP-PFIZER INC-2008083035

PATIENT
  Sex: Male
  Weight: 62 kg

DRUGS (11)
  1. SOLU-MEDROL [Suspect]
     Indication: INTERSTITIAL LUNG DISEASE
     Route: 042
     Dates: start: 20071117, end: 20071119
  2. VELCADE [Suspect]
     Indication: MULTIPLE MYELOMA
     Dosage: DAILY DOSE:2.2MG
     Route: 042
     Dates: start: 20071112, end: 20071115
  3. CRAVIT [Concomitant]
     Route: 048
     Dates: start: 20060814
  4. ITRIZOLE [Concomitant]
     Route: 048
     Dates: start: 20060814, end: 20071113
  5. PROGRAF [Concomitant]
     Route: 048
     Dates: start: 20070809
  6. PREDNISOLONE [Concomitant]
     Route: 048
     Dates: start: 20070809, end: 20071116
  7. COTRIM [Concomitant]
     Route: 048
     Dates: start: 20071114
  8. VFEND [Concomitant]
     Route: 048
     Dates: end: 20071115
  9. FLUCONAZOLE [Concomitant]
     Route: 048
     Dates: start: 20071117
  10. DECADRON [Concomitant]
     Indication: MULTIPLE MYELOMA
     Route: 042
     Dates: start: 20071112, end: 20071116
  11. URINORM [Concomitant]
     Route: 048
     Dates: start: 20040210

REACTIONS (1)
  - THROMBOTIC MICROANGIOPATHY [None]
